FAERS Safety Report 9650816 (Version 1)
Quarter: 2013Q4

REPORT INFORMATION
  Report Type: Spontaneous
  Country: BR (occurrence: BR)
  Receive Date: 20131029
  Receipt Date: 20131029
  Transmission Date: 20140711
  Serious: Yes (Hospitalization)
  Sender: FDA-Public Use
  Company Number: BR-AMGEN-BRASP2013076181

PATIENT
  Age: 46 Year
  Sex: Female
  Weight: 56 kg

DRUGS (2)
  1. ENBREL [Suspect]
     Indication: RHEUMATOID ARTHRITIS
     Dosage: 50 MG, ONCE WEEKLY
     Route: 058
     Dates: start: 201303, end: 201307
  2. PURAN T4 [Concomitant]
     Indication: THYROID NEOPLASM
     Dosage: UNK
     Dates: start: 2008

REACTIONS (3)
  - Hypertension [Unknown]
  - Dizziness [Unknown]
  - Nausea [Unknown]
